FAERS Safety Report 13032752 (Version 1)
Quarter: 2016Q4

REPORT INFORMATION
  Report Type: Spontaneous
  Country: US (occurrence: US)
  Receive Date: 20161215
  Receipt Date: 20161215
  Transmission Date: 20170207
  Serious: No
  Sender: FDA-Public Use
  Company Number: US-ASTRAZENECA-2016SF24508

PATIENT
  Age: 18752 Day
  Sex: Female
  Weight: 118.8 kg

DRUGS (4)
  1. SYMBICORT [Suspect]
     Active Substance: BUDESONIDE\FORMOTEROL FUMARATE DIHYDRATE
     Indication: ASTHMA
     Dosage: 160/4.5, TWO PUFFS INHALED TWO TIMES A DAY
     Route: 055
     Dates: start: 20161104, end: 201611
  2. HUMALOG [Concomitant]
     Active Substance: INSULIN LISPRO
     Indication: DIABETES MELLITUS
     Dosage: HUMALOG INSULIN 13 UNITS SQ WITH BREAKFAST AND LUNCH AND TAKES 15 UNITS WITH DINNER
     Route: 058
  3. PROVENTIL ALBUTEROL [Concomitant]
     Dosage: 90.0UG AS REQUIRED
     Route: 055
     Dates: start: 2002
  4. GABAPENTIN. [Concomitant]
     Active Substance: GABAPENTIN
     Indication: DIABETIC NEUROPATHY
     Route: 048
     Dates: start: 2012

REACTIONS (2)
  - Peripheral swelling [Unknown]
  - Skin exfoliation [Unknown]

NARRATIVE: CASE EVENT DATE: 20161105
